FAERS Safety Report 5104073-2 (Version None)
Quarter: 2006Q3

REPORT INFORMATION
  Report Type: 
  Country: None (occurrence: None)
  Receive Date: 20060911
  Receipt Date: 20060829
  Transmission Date: 20061208
  Serious: Yes (Hospitalization, Other)
  Sender: FDA-Public Use
  Company Number: 2006057246

PATIENT
  Age: 63 Year
  Sex: Male
  Weight: 70 kg

DRUGS (5)
  1. SALAZOPYRIN (SULFASALAZINE) [Suspect]
     Indication: DRUG USE FOR UNKNOWN INDICATION
     Dosage: ORAL
     Route: 048
     Dates: start: 20040909, end: 20041029
  2. CIBACEN (BENAZEPRIL HYDROCHLORIDE) [Concomitant]
  3. TENORMIN [Concomitant]
  4. ADALAT CR (NIFEDIPINE) [Concomitant]
  5. POSTERISAN F (ESCHERICHIA COLI, HYDROCORTISONE) [Concomitant]

REACTIONS (9)
  - ALANINE AMINOTRANSFERASE INCREASED [None]
  - ASPARTATE AMINOTRANSFERASE INCREASED [None]
  - DRUG HYPERSENSITIVITY [None]
  - HEPATIC FUNCTION ABNORMAL [None]
  - HUMAN HERPES VIRUS 6 SEROLOGY POSITIVE [None]
  - PIGMENTATION DISORDER [None]
  - PURPURA [None]
  - PYREXIA [None]
  - TOXIC SKIN ERUPTION [None]
